FAERS Safety Report 4781176-3 (Version None)
Quarter: 2005Q3

REPORT INFORMATION
  Report Type: 
  Country: None (occurrence: None)
  Receive Date: 20050928
  Receipt Date: 20050912
  Transmission Date: 20060218
  Serious: Yes (Other)
  Sender: FDA-Public Use
  Company Number: GB-BRISTOL-MYERS SQUIBB COMPANY-13122916

PATIENT
  Age: 30 Year
  Sex: Female

DRUGS (2)
  1. SINEMET [Suspect]
     Indication: PARKINSON'S DISEASE
     Dosage: DOSAGE: INCREASED TO 625 MG DAILY IN 2003
     Route: 048
     Dates: start: 19980101, end: 20030101
  2. CABERGOLINE [Suspect]
     Indication: PARKINSON'S DISEASE
     Dosage: DOSAGE: INCREASED TO 4 MG DAILY UNTIL 2003; INCREASED TO 5 MG DAILY
     Dates: start: 20030101

REACTIONS (7)
  - CAESAREAN SECTION [None]
  - MULTIGRAVIDA [None]
  - NORMAL NEWBORN [None]
  - PARKINSON'S DISEASE [None]
  - PREGNANCY [None]
  - PREMATURE SEPARATION OF PLACENTA [None]
  - PRIMIGRAVIDA [None]
